FAERS Safety Report 9008652 (Version 1)
Quarter: 2013Q1

REPORT INFORMATION
  Report Type: Spontaneous
  Country: US (occurrence: US)
  Receive Date: 20130111
  Receipt Date: 20130111
  Transmission Date: 20140127
  Serious: Yes (Hospitalization, Other)
  Sender: FDA-Public Use
  Company Number: US-009507513-1301USA001595

PATIENT
  Age: 72 Year
  Sex: Male

DRUGS (20)
  1. MONTELUKAST SODIUM [Suspect]
     Indication: COUGH
     Dosage: UNK
     Route: 048
  2. MONTELUKAST SODIUM [Suspect]
     Indication: GASTRIC MUCOSAL LESION
  3. MONTELUKAST SODIUM [Suspect]
     Indication: HYPERSENSITIVITY
  4. MONTELUKAST SODIUM [Suspect]
     Indication: INSULIN RESISTANT DIABETES
  5. MONTELUKAST SODIUM [Suspect]
     Indication: SEDATION
  6. HERBAL PREPARATION [Suspect]
     Route: 048
  7. ACTOS [Suspect]
     Dosage: 15 MG, QD
     Route: 048
  8. MEILAX [Suspect]
     Dosage: 1 MG, QD
     Route: 048
  9. CODEINE PHOSPHATE [Suspect]
     Dosage: 4.5 G, QD
     Route: 048
  10. RABEPRAZOLE SODIUM [Suspect]
     Dosage: 20 MG, QD
     Route: 048
  11. GASMOTIN [Concomitant]
  12. BAKUMONDO-TO [Concomitant]
  13. ATELEC [Concomitant]
  14. MEDICON (DEXTROMETHORPHAN HYDROBROMIDE) [Concomitant]
  15. ONON [Concomitant]
  16. NORVASC [Concomitant]
  17. FLIVAS [Concomitant]
  18. METHYCOBAL [Concomitant]
  19. PRORENAL [Concomitant]
  20. HANGE-KOBOKU-TO [Concomitant]

REACTIONS (16)
  - Lung disorder [Unknown]
  - Vocal cord paralysis [Unknown]
  - Pneumonitis [Unknown]
  - Pleural fibrosis [Unknown]
  - Lumbar spinal stenosis [Unknown]
  - Laryngeal disorder [Unknown]
  - Interstitial lung disease [Unknown]
  - Hypoaesthesia [Unknown]
  - Fall [Unknown]
  - Eosinophilia [Unknown]
  - Organising pneumonia [Unknown]
  - Collagen disorder [Unknown]
  - Cardiomegaly [Unknown]
  - Blood lactate dehydrogenase decreased [Unknown]
  - Balance disorder [Unknown]
  - Back disorder [Unknown]
